FAERS Safety Report 9698541 (Version 1)
Quarter: 2013Q4

REPORT INFORMATION
  Report Type: Report from Study
  Country: US (occurrence: US)
  Receive Date: 20131120
  Receipt Date: 20131120
  Transmission Date: 20140711
  Serious: Yes (Death, Life-Threatening, Hospitalization, Other)
  Sender: FDA-Public Use
  Company Number: US-GLAXOSMITHKLINE-A1050308A

PATIENT
  Age: 69 Year
  Sex: Male

DRUGS (16)
  1. TEMOZOLOMIDE [Suspect]
     Indication: GLIOBLASTOMA MULTIFORME
     Dates: start: 20130710
  2. ZOFRAN [Suspect]
  3. PRAVACHOL [Suspect]
  4. CLOTRIMAZOLE [Suspect]
  5. DIFLUCAN [Suspect]
  6. KEPPRA [Suspect]
  7. LOSARTAN [Suspect]
  8. BLINDED TRIAL MEDICATION [Concomitant]
     Indication: GLIOBLASTOMA MULTIFORME
  9. BACID [Concomitant]
  10. BACTRIM [Concomitant]
  11. COMPAZINE [Concomitant]
  12. RADIOTHERAPY [Concomitant]
  13. OXYCODONE [Concomitant]
  14. DEXAMETHASONE [Concomitant]
  15. VITAMIN D [Concomitant]
  16. MULTIVITAMIN [Concomitant]

REACTIONS (8)
  - Death [Fatal]
  - Sepsis [Unknown]
  - Wound infection [Unknown]
  - Muscular weakness [Unknown]
  - Decreased appetite [Unknown]
  - Dehydration [Unknown]
  - Herpes virus infection [Unknown]
  - Depressed level of consciousness [Unknown]
